FAERS Safety Report 6484673-8 (Version None)
Quarter: 2009Q4

REPORT INFORMATION
  Report Type: 
  Country: None (occurrence: None)
  Receive Date: 20091204
  Receipt Date: 20091123
  Transmission Date: 20100525
  Serious: Yes (Death, Hospitalization)
  Sender: FDA-Public Use
  Company Number: 91817

PATIENT
  Age: 63 Year
  Sex: Female

DRUGS (1)
  1. PACLITAXEL [Suspect]
     Indication: BREAST CANCER METASTATIC
     Dosage: 90MG/M2  DAYS 1, 8 AND 15

REACTIONS (10)
  - ABDOMINAL PAIN [None]
  - ABDOMINAL RIGIDITY [None]
  - ASCITES [None]
  - BREAST CANCER METASTATIC [None]
  - DEEP VEIN THROMBOSIS [None]
  - INTESTINAL ISCHAEMIA [None]
  - INTESTINAL PERFORATION [None]
  - METASTASES TO PERITONEUM [None]
  - PERITONITIS [None]
  - PNEUMOPERITONEUM [None]
